FAERS Safety Report 10458098 (Version 2)
Quarter: 2014Q3

REPORT INFORMATION
  Report Type: Spontaneous
  Country: US (occurrence: US)
  Receive Date: 20140917
  Receipt Date: 20140917
  Transmission Date: 20150326
  Serious: Yes (Other)
  Sender: FDA-Public Use
  Company Number: US-ROCHE-1299168

PATIENT
  Age: 84 Year
  Sex: Male

DRUGS (2)
  1. ZELBORAF [Suspect]
     Active Substance: VEMURAFENIB
     Indication: PRODUCT USED FOR UNKNOWN INDICATION
     Route: 048
     Dates: start: 201309
  2. ZELBORAF [Suspect]
     Active Substance: VEMURAFENIB
     Dosage: 2 TABLTES
     Route: 048
     Dates: start: 20131004, end: 20140908

REACTIONS (2)
  - Squamous cell carcinoma [Unknown]
  - Disease progression [Unknown]

NARRATIVE: CASE EVENT DATE: 20140908
